FAERS Safety Report 9879532 (Version 2)
Quarter: 2014Q1

REPORT INFORMATION
  Report Type: Spontaneous
  Country: DK (occurrence: DK)
  Receive Date: 20140206
  Receipt Date: 20140220
  Transmission Date: 20141002
  Serious: Yes (Hospitalization)
  Sender: FDA-Public Use
  Company Number: DK-ELI_LILLY_AND_COMPANY-DK201401011280

PATIENT
  Age: 75 Year
  Sex: Male
  Weight: 65 kg

DRUGS (4)
  1. EFIENT [Suspect]
     Indication: STENT PLACEMENT
     Dosage: 60 MG, SINGLE
     Dates: start: 20120113, end: 20120113
  2. EFIENT [Suspect]
     Dosage: 10 MG, QD
     Route: 048
     Dates: start: 20120114
  3. ASA [Concomitant]
     Dosage: UNK UNK, SINGLE
     Route: 048
  4. ASA [Concomitant]
     Dosage: 100 MG, QD
     Route: 048

REACTIONS (1)
  - Dysphagia [Recovered/Resolved]
